FAERS Safety Report 5548748-X (Version None)
Quarter: 2007Q4

REPORT INFORMATION
  Report Type: 
  Country: None (occurrence: None)
  Receive Date: 20071211
  Receipt Date: 20071210
  Transmission Date: 20080405
  Serious: Yes (Hospitalization)
  Sender: FDA-Public Use
  Company Number: FR-GENENTECH-249513

PATIENT
  Age: 59 Year
  Sex: Female

DRUGS (3)
  1. MABTHERA [Suspect]
     Indication: RHEUMATOID ARTHRITIS
  2. MORPHINE [Concomitant]
     Indication: DRUG USE FOR UNKNOWN INDICATION
  3. ACTISKENAN [Concomitant]
     Indication: DRUG USE FOR UNKNOWN INDICATION

REACTIONS (2)
  - DISTURBANCE IN ATTENTION [None]
  - SOMNOLENCE [None]
